FAERS Safety Report 6535627-4 (Version None)
Quarter: 2010Q1

REPORT INFORMATION
  Report Type: 
  Country: None (occurrence: None)
  Receive Date: 20100113
  Receipt Date: 20100108
  Transmission Date: 20100710
  Serious: Yes (Death)
  Sender: FDA-Public Use
  Company Number: PHHY2010BR01198

PATIENT
  Sex: Male

DRUGS (5)
  1. DIOVAN [Suspect]
     Indication: HYPERTENSION
     Dosage: 1 TABLET (160 MG) DAILY
     Route: 048
     Dates: start: 20070101
  2. ATENOLOL AND CHLORTHALIDONE [Concomitant]
     Indication: HYPERTENSION
     Dosage: 2 TABLETS DAILY
     Route: 048
  3. AAS [Concomitant]
     Indication: CARDIAC DISORDER
     Dosage: 2 TABLETS DAILY
     Route: 048
  4. SINVACOR [Concomitant]
     Indication: BLOOD CHOLESTEROL INCREASED
     Dosage: 1 TABLET DAILY
     Route: 048
  5. METFORMIN HYDROCHLORIDE [Concomitant]
     Dosage: 1 TABLET (850MG) DAILY
     Route: 048

REACTIONS (1)
  - ACUTE MYOCARDIAL INFARCTION [None]
